FAERS Safety Report 6228114-4 (Version None)
Quarter: 2009Q2

REPORT INFORMATION
  Report Type: 
  Country: None (occurrence: None)
  Receive Date: 20090612
  Receipt Date: 20090603
  Transmission Date: 20091009
  Serious: Yes (Life-Threatening, Hospitalization)
  Sender: FDA-Public Use
  Company Number: TW-JNJFOC-20090305344

PATIENT
  Sex: Male
  Weight: 78 kg

DRUGS (5)
  1. INVEGA [Suspect]
     Indication: SCHIZOPHRENIA
     Route: 048
  2. DORMICUM [Concomitant]
     Indication: INSOMNIA
     Route: 048
  3. PAROXETINE HCL [Concomitant]
     Indication: ANXIETY
     Dosage: 1/2 DOSE AT HOUR OF SLEEP
     Route: 048
  4. ZOLPIDEM TARTRATE [Concomitant]
     Indication: INSOMNIA
     Route: 048
  5. ARTANE [Concomitant]
     Indication: DYSTONIA
     Route: 048

REACTIONS (1)
  - SUICIDE ATTEMPT [None]
